FAERS Safety Report 5149981-1 (Version None)
Quarter: 2006Q4

REPORT INFORMATION
  Report Type: 
  Country: None (occurrence: None)
  Receive Date: 20061108
  Receipt Date: 20061025
  Transmission Date: 20070319
  Serious: Yes (Other)
  Sender: FDA-Public Use
  Company Number: 2006131938

PATIENT
  Sex: Male

DRUGS (1)
  1. GEODON [Suspect]
     Dosage: 20 MG (20 MG, 1 IN 1 D)
     Dates: end: 20061025

REACTIONS (2)
  - CARDIAC DISORDER [None]
  - PALPITATIONS [None]
